FAERS Safety Report 11359934 (Version 3)
Quarter: 2017Q2

REPORT INFORMATION
  Report Type: Report from Study
  Country: US (occurrence: US)
  Receive Date: 20150810
  Receipt Date: 20170412
  Transmission Date: 20170829
  Serious: No
  Sender: FDA-Public Use
  Company Number: PHEH2015US014677

PATIENT
  Sex: Male
  Weight: 76.2 kg

DRUGS (4)
  1. IMATINIB [Suspect]
     Active Substance: IMATINIB
     Indication: GASTROINTESTINAL STROMAL TUMOUR
     Route: 065
     Dates: start: 20160226
  2. FLUTICASONE. [Concomitant]
     Active Substance: FLUTICASONE
     Indication: PRODUCT USED FOR UNKNOWN INDICATION
     Route: 065
  3. LORATADINE. [Concomitant]
     Active Substance: LORATADINE
     Indication: PRODUCT USED FOR UNKNOWN INDICATION
     Route: 065
  4. GLEEVEC [Suspect]
     Active Substance: IMATINIB MESYLATE
     Indication: GASTROINTESTINAL STROMAL TUMOUR
     Dosage: 400 MG, QD (DAILY)
     Route: 048
     Dates: start: 20150701, end: 201602

REACTIONS (6)
  - Muscle spasms [Unknown]
  - Diarrhoea [Unknown]
  - Nausea [Recovering/Resolving]
  - Gastrointestinal disorder [Unknown]
  - Abdominal pain upper [Unknown]
  - Dyspepsia [Unknown]
